FAERS Safety Report 24270526 (Version 1)
Quarter: 2024Q3

REPORT INFORMATION
  Report Type: Spontaneous
  Country: US (occurrence: US)
  Receive Date: 20240831
  Receipt Date: 20240831
  Transmission Date: 20241016
  Serious: Yes (Life-Threatening, Hospitalization, Other)
  Sender: Unknown Manufacturer
  Company Number: US-862174955-ML2024-04638

PATIENT
  Age: 17 Year
  Sex: Male
  Weight: 85 kg

DRUGS (3)
  1. VERAPAMIL [Suspect]
     Active Substance: VERAPAMIL HYDROCHLORIDE
     Indication: Product used for unknown indication
     Route: 048
  2. FLUOXETINE [Concomitant]
     Active Substance: FLUOXETINE HYDROCHLORIDE
     Indication: Product used for unknown indication
     Route: 048
  3. MIRTAZAPINE [Concomitant]
     Active Substance: MIRTAZAPINE
     Indication: Product used for unknown indication
     Route: 048

REACTIONS (5)
  - Distributive shock [Recovered/Resolved]
  - Nodal rhythm [Recovered/Resolved]
  - Lactic acidosis [Recovered/Resolved]
  - Atrioventricular block [Recovered/Resolved]
  - Intentional overdose [Unknown]
